FAERS Safety Report 8773241 (Version 3)
Quarter: 2012Q4

REPORT INFORMATION
  Report Type: 
  Country: US (occurrence: US)
  Receive Date: 20120907
  Receipt Date: 20120921
  Transmission Date: 20130627
  Serious: No
  Sender: FDA-Public Use
  Company Number: US-009507513-1208USA011677

PATIENT
  Sex: Male

DRUGS (4)
  1. REBETOL [Suspect]
     Indication: HEPATITIS C
     Dosage: UNK
     Route: 048
     Dates: start: 20080701, end: 20090601
  2. REBETOL [Suspect]
     Dosage: UNK
     Dates: start: 20120822
  3. PEGASYS [Concomitant]
     Indication: HEPATITIS C
     Dosage: UNK
     Dates: start: 20080701, end: 20090601
  4. PEGASYS [Concomitant]
     Dosage: UNK
     Dates: start: 20120822

REACTIONS (10)
  - Confusional state [Unknown]
  - No therapeutic response [Unknown]
  - Fatigue [Unknown]
  - Headache [Unknown]
  - Depression [Unknown]
  - Nocturia [Unknown]
  - Headache [Unknown]
  - Insomnia [Unknown]
  - Platelet count decreased [Unknown]
  - Haemoglobin decreased [Unknown]
